FAERS Safety Report 8776612 (Version 1)
Quarter: 2012Q4

REPORT INFORMATION
  Report Type: 
  Country: US (occurrence: US)
  Receive Date: 20120910
  Receipt Date: 20120910
  Transmission Date: 20130627
  Serious: Yes (Other)
  Sender: FDA-Public Use
  Company Number: US-ASTRAZENECA-2012SE69573

PATIENT
  Age: 50 Year
  Sex: Female

DRUGS (2)
  1. BRILINTA [Suspect]
     Dosage: LOADING DOSE
     Route: 048
  2. MULTIPLE MEDICATION [Concomitant]

REACTIONS (5)
  - Myocardial infarction [Unknown]
  - Adverse event [Unknown]
  - Nausea [Unknown]
  - Vomiting [Unknown]
  - Abdominal discomfort [Unknown]
